FAERS Safety Report 18898513 (Version 5)
Quarter: 2021Q3

REPORT INFORMATION
  Report Type: Report from Study
  Country: CA (occurrence: CA)
  Receive Date: 20210216
  Receipt Date: 20210920
  Transmission Date: 20211014
  Serious: Yes (Other)
  Sender: FDA-Public Use
  Company Number: CA-JNJFOC-20210224192

PATIENT
  Age: 25 Year
  Sex: Female
  Weight: 110 kg

DRUGS (1)
  1. REMICADE [Suspect]
     Active Substance: INFLIXIMAB
     Indication: CROHN^S DISEASE
     Dosage: 7MG ROUNDED UP DOSE
     Route: 042
     Dates: start: 20161222

REACTIONS (3)
  - Clostridium difficile infection [Unknown]
  - Wound [Unknown]
  - Abscess [Unknown]
